FAERS Safety Report 6543329-3 (Version None)
Quarter: 2010Q1

REPORT INFORMATION
  Report Type: 
  Country: None (occurrence: None)
  Receive Date: 20100120
  Receipt Date: 20100107
  Transmission Date: 20100710
  Serious: Yes (Other)
  Sender: FDA-Public Use
  Company Number: GB-PFIZER INC-2008016681

PATIENT
  Age: 44 Year
  Sex: Female
  Weight: 82 kg

DRUGS (2)
  1. CHAMPIX [Suspect]
     Indication: EX-TOBACCO USER
     Route: 048
     Dates: start: 20080114, end: 20080121
  2. CHAMPIX [Suspect]
     Dosage: 1 MG, UNK
     Route: 048
     Dates: start: 20080114, end: 20080121

REACTIONS (6)
  - HYPERHIDROSIS [None]
  - HYPOAESTHESIA [None]
  - NAUSEA [None]
  - PANIC REACTION [None]
  - PSORIASIS [None]
  - RASH [None]
